FAERS Safety Report 9086552 (Version 4)
Quarter: 2013Q3

REPORT INFORMATION
  Report Type: Report from Study
  Country: BR (occurrence: BR)
  Receive Date: 20130131
  Receipt Date: 20130729
  Transmission Date: 20140515
  Serious: Yes (Hospitalization, Other)
  Sender: FDA-Public Use
  Company Number: BR-ABBOTT-13P-020-1042655-00

PATIENT
  Age: 59 Year
  Sex: Female
  Weight: 71 kg

DRUGS (14)
  1. HUMIRA [Suspect]
     Indication: RHEUMATOID ARTHRITIS
     Route: 058
     Dates: start: 20120426
  2. HUMIRA [Suspect]
  3. ARAVA [Concomitant]
     Indication: ARTHRITIS
     Route: 048
     Dates: start: 1997
  4. METHOTREXATE [Concomitant]
     Indication: ARTHRITIS
     Route: 048
     Dates: start: 1997
  5. ALENDRONATE [Concomitant]
     Indication: SPINAL DISORDER
     Route: 048
     Dates: start: 2003
  6. CODEINE [Concomitant]
     Indication: PAIN
     Route: 048
     Dates: start: 1997
  7. ENALAPRIL [Concomitant]
     Indication: HYPERTENSION
     Route: 048
     Dates: start: 1997
  8. PREDNISONE [Concomitant]
     Indication: PAIN
     Route: 048
     Dates: start: 1997
  9. AMITRIPTYLINE [Concomitant]
     Indication: SLEEP DISORDER THERAPY
     Route: 048
     Dates: start: 1997
  10. FOLIC ACID [Concomitant]
     Indication: VITAMIN SUPPLEMENTATION
     Route: 048
     Dates: start: 1997
  11. AD-TIL [Concomitant]
     Indication: VITAMIN SUPPLEMENTATION
     Route: 048
     Dates: start: 1997
  12. TRAMADOL [Concomitant]
     Indication: PAIN
     Route: 048
     Dates: start: 201304
  13. CELECOXIB [Concomitant]
     Indication: PAIN
     Route: 048
     Dates: start: 1997
  14. DIPYRONE [Concomitant]
     Indication: HEADACHE
     Route: 048
     Dates: start: 1993

REACTIONS (9)
  - Finger deformity [Recovered/Resolved]
  - Localised infection [Recovering/Resolving]
  - Procedural complication [Unknown]
  - Pyelocaliectasis [Unknown]
  - Nephrolithiasis [Unknown]
  - Cholelithiasis [Unknown]
  - Osteoporosis [Unknown]
  - Tendonitis [Unknown]
  - Arthritis [Unknown]
